FAERS Safety Report 21409517 (Version 1)
Quarter: 2022Q4

REPORT INFORMATION
  Report Type: Spontaneous
  Country: US (occurrence: None)
  Receive Date: 20221003
  Receipt Date: 20221003
  Transmission Date: 20230113
  Serious: No
  Sender: FDA-Public Use
  Company Number: None

PATIENT
  Age: 68 Year
  Sex: Male

DRUGS (1)
  1. HUMIRA [Suspect]
     Active Substance: ADALIMUMAB
     Indication: Psoriasis
     Dosage: 40MG OTHER SUBCUTANEOUS
     Route: 058
     Dates: start: 202108

REACTIONS (2)
  - Pruritus [None]
  - Product supply issue [None]

NARRATIVE: CASE EVENT DATE: 20220930
